FAERS Safety Report 5259877-2 (Version None)
Quarter: 2007Q1

REPORT INFORMATION
  Report Type: 
  Country: None (occurrence: None)
  Receive Date: 20070309
  Receipt Date: 20070308
  Transmission Date: 20070707
  Serious: Yes (Other)
  Sender: FDA-Public Use
  Company Number: IT-BRISTOL-MYERS SQUIBB COMPANY-13706098

PATIENT
  Age: 86 Year
  Sex: Male

DRUGS (1)
  1. COUMADIN [Suspect]
     Indication: ARRHYTHMIA
     Route: 048
     Dates: start: 20070101, end: 20070213

REACTIONS (7)
  - BLADDER DIVERTICULUM [None]
  - BLOOD PRESSURE INCREASED [None]
  - HAEMATURIA [None]
  - INTERNATIONAL NORMALISED RATIO INCREASED [None]
  - NEPHROLITHIASIS [None]
  - NEUROPATHY PERIPHERAL [None]
  - RENAL CYST [None]
